FAERS Safety Report 5602350-X (Version None)
Quarter: 2008Q1

REPORT INFORMATION
  Report Type: 
  Country: None (occurrence: None)
  Receive Date: 20080118
  Receipt Date: 20080111
  Transmission Date: 20080703
  Serious: Yes (Hospitalization)
  Sender: FDA-Public Use
  Company Number: WAES 0801USA02464

PATIENT
  Age: 72 Year
  Sex: Male
  Weight: 35.3806 kg

DRUGS (5)
  1. INDOCIN [Suspect]
     Indication: GOUT
     Dosage: 50 MG/BID/PO
     Route: 048
     Dates: start: 20071206
  2. INJ CETUXIMAB 400 MG/M[2] [Suspect]
     Indication: PANCREATIC CARCINOMA
     Dosage: 400 MG/M[2]/WKY/IV
     Route: 042
     Dates: start: 20071128, end: 20071203
  3. OXALIPLATIN [Suspect]
     Indication: PANCREATIC CARCINOMA
     Dosage: 100 MG/M[2]/Q2W/IV
     Route: 042
     Dates: start: 20071128, end: 20071128
  4. ALLOPURINOL [Suspect]
     Indication: GOUT
     Dates: start: 20070601
  5. GEMCITABINE [Suspect]
     Indication: PANCREATIC CARCINOMA
     Dosage: 1000 MG/M[2]/Q2W/IV
     Route: 042
     Dates: start: 20071128, end: 20071128

REACTIONS (6)
  - DEHYDRATION [None]
  - GOUT [None]
  - LEUKOCYTOCLASTIC VASCULITIS [None]
  - OEDEMA PERIPHERAL [None]
  - PETECHIAE [None]
  - PURPURA [None]
